FAERS Safety Report 23356357 (Version 2)
Quarter: 2024Q1

REPORT INFORMATION
  Report Type: Spontaneous
  Country: PL (occurrence: PL)
  Receive Date: 20240102
  Receipt Date: 20240328
  Transmission Date: 20240410
  Serious: Yes (Hospitalization, Other)
  Sender: FDA-Public Use
  Company Number: PL-SUN PHARMACEUTICAL INDUSTRIES LTD-2022RR-355865

PATIENT
  Age: 71 Year
  Sex: Female

DRUGS (7)
  1. PEMETREXED [Suspect]
     Active Substance: PEMETREXED
     Indication: Large cell lung cancer metastatic
     Dosage: 500 MILLIGRAM/SQ. METER, 3 TIMES IN A WEEK
     Route: 042
     Dates: start: 20210209, end: 20210928
  2. CARBOPLATIN [Suspect]
     Active Substance: CARBOPLATIN
     Indication: Large cell lung cancer metastatic
     Dosage: UNK (AREA UNDER CURVE DOSE 5 MG/ML.)
     Route: 065
  3. CISPLATIN [Suspect]
     Active Substance: CISPLATIN
     Indication: Large cell lung cancer metastatic
     Dosage: 75 MILLIGRAM, 3 TIMES IN A WEEK
     Route: 042
     Dates: start: 20210209, end: 20210302
  4. PEMBROLIZUMAB [Suspect]
     Active Substance: PEMBROLIZUMAB
     Indication: Large cell lung cancer metastatic
     Dosage: 200 MILLIGRAM, 3 TIMES IN A WEEL
     Route: 042
     Dates: start: 20210209, end: 20210928
  5. FOLIC ACID [Concomitant]
     Active Substance: FOLIC ACID
     Indication: Product used for unknown indication
     Dosage: UNK
     Route: 065
  6. VITAMIN B12 [Concomitant]
     Active Substance: CYANOCOBALAMIN
     Indication: Product used for unknown indication
     Dosage: UNK
     Route: 065
  7. DEXAMETHASONE [Concomitant]
     Active Substance: DEXAMETHASONE
     Indication: Product used for unknown indication
     Dosage: UNK
     Route: 065

REACTIONS (8)
  - Acute kidney injury [Recovered/Resolved]
  - Malignant neoplasm progression [Not Recovered/Not Resolved]
  - Disease progression [Unknown]
  - Fatigue [Recovering/Resolving]
  - Therapy partial responder [Unknown]
  - Autoimmune hypothyroidism [Not Recovered/Not Resolved]
  - Large cell lung cancer metastatic [Unknown]
  - Hyperthyroidism [Unknown]

NARRATIVE: CASE EVENT DATE: 20210101
